FAERS Safety Report 20129219 (Version 1)
Quarter: 2021Q4

REPORT INFORMATION
  Report Type: Spontaneous
  Country: US (occurrence: US)
  Receive Date: 20211130
  Receipt Date: 20211130
  Transmission Date: 20220303
  Serious: Yes (Other)
  Sender: FDA-Public Use
  Company Number: US-SA-2021SA388829

PATIENT
  Sex: Female

DRUGS (18)
  1. HYDROCORTISONE [Suspect]
     Active Substance: HYDROCORTISONE
     Indication: Acute promyelocytic leukaemia
     Dosage: UNK
     Route: 037
     Dates: start: 200211, end: 2002
  2. HYDROCORTISONE [Suspect]
     Active Substance: HYDROCORTISONE
     Indication: Central nervous system leukaemia
     Dosage: UNK UNK, QW
     Route: 037
     Dates: start: 2003
  3. HYDROCORTISONE [Suspect]
     Active Substance: HYDROCORTISONE
     Dosage: UNK UNK, QOW
     Route: 037
  4. METHOTREXATE [Suspect]
     Active Substance: METHOTREXATE
     Indication: Acute promyelocytic leukaemia
     Dosage: UNK
     Route: 037
     Dates: start: 200211, end: 2002
  5. METHOTREXATE [Suspect]
     Active Substance: METHOTREXATE
     Indication: Central nervous system leukaemia
     Dosage: 20 MG/M2, QW
     Route: 048
     Dates: start: 2003
  6. METHOTREXATE [Suspect]
     Active Substance: METHOTREXATE
     Dosage: 20 MG/M2, QW
     Route: 048
     Dates: start: 2001, end: 2002
  7. METHOTREXATE [Suspect]
     Active Substance: METHOTREXATE
     Dosage: UNK
     Route: 037
     Dates: start: 2003
  8. METHOTREXATE [Suspect]
     Active Substance: METHOTREXATE
     Dosage: UNK
     Route: 037
  9. TRETINOIN [Suspect]
     Active Substance: TRETINOIN
     Indication: Acute promyelocytic leukaemia
     Dosage: 25 MG/M2 /DAY DIVIDED BID
     Dates: start: 2003
  10. TRETINOIN [Suspect]
     Active Substance: TRETINOIN
     Indication: Central nervous system lymphoma
     Dosage: 45 MG/M2/DAY DIVIDED BID
     Dates: start: 2001
  11. TRETINOIN [Suspect]
     Active Substance: TRETINOIN
     Dosage: 45 MG/M2 /DAY DIVIDED BID, EVERY OTHER WEEK
     Dates: start: 2001, end: 2002
  12. CYTARABINE [Suspect]
     Active Substance: CYTARABINE
     Indication: Acute promyelocytic leukaemia
     Dosage: UNK
     Route: 037
     Dates: start: 200211, end: 2002
  13. CYTARABINE [Suspect]
     Active Substance: CYTARABINE
     Indication: Central nervous system leukaemia
     Dosage: UNK UNK, QW
     Route: 037
     Dates: start: 2003
  14. CYTARABINE [Suspect]
     Active Substance: CYTARABINE
     Dosage: UNK UNK, QOW
     Route: 037
  15. CYTARABINE [Suspect]
     Active Substance: CYTARABINE
     Dosage: 200 MG/M2, QD
     Dates: start: 2001, end: 2001
  16. MERCAPTOPURINE [Suspect]
     Active Substance: MERCAPTOPURINE
     Indication: Acute promyelocytic leukaemia
     Dosage: 60 MG/M2, QD
     Dates: start: 2003
  17. MERCAPTOPURINE [Suspect]
     Active Substance: MERCAPTOPURINE
     Indication: Central nervous system leukaemia
     Dosage: UNK
  18. MERCAPTOPURINE [Suspect]
     Active Substance: MERCAPTOPURINE
     Dosage: 60 MG/M2, QD
     Dates: start: 2001, end: 2002

REACTIONS (4)
  - Generalised tonic-clonic seizure [Recovered/Resolved]
  - Cystitis haemorrhagic [Unknown]
  - Urinary tract infection [Unknown]
  - Adenovirus infection [Unknown]

NARRATIVE: CASE EVENT DATE: 20030101
